FAERS Safety Report 6398288-3 (Version None)
Quarter: 2009Q4

REPORT INFORMATION
  Report Type: 
  Country: None (occurrence: None)
  Receive Date: 20091007
  Receipt Date: 20090922
  Transmission Date: 20100525
  Serious: Yes (Death, Hospitalization)
  Sender: FDA-Public Use
  Company Number: 2009002894

PATIENT
  Age: 74 Year
  Sex: Male

DRUGS (15)
  1. ERLOTINIB HYDROCHLORIDE [Suspect]
     Indication: LUNG SQUAMOUS CELL CARCINOMA STAGE UNSPECIFIED
     Dosage: MG, QD), ORAL
     Route: 048
  2. CELECOXIB [Concomitant]
  3. DICLOFENAC (DICLOFENAC) [Concomitant]
  4. AMPICILLIN [Concomitant]
  5. SULBACTAM (SULBACTAM) [Concomitant]
  6. METILON (METAMIZOLE SODIUM) [Concomitant]
  7. CODEINE PHOSPHATE (CODEINE PHOSPHATE) [Concomitant]
  8. MAGNESIUM OXIDE (MAGNESIUM OXIDE) [Concomitant]
  9. DIGOXIN [Concomitant]
  10. CARVEDILOL [Concomitant]
  11. GASMOTIN (MOSAPRIDE CITRATE) [Concomitant]
  12. MUCOSOLVAN (AMBROXOL HYDROCHLORIDE) [Concomitant]
  13. TORSEMIDE [Concomitant]
  14. GARENOXACIN MESILATE [Concomitant]
  15. OMEPRAZOLE [Concomitant]

REACTIONS (7)
  - CARDIAC FAILURE [None]
  - GASTRIC ULCER [None]
  - GASTROINTESTINAL HAEMORRHAGE [None]
  - HAEMOGLOBIN DECREASED [None]
  - LUNG SQUAMOUS CELL CARCINOMA STAGE UNSPECIFIED [None]
  - MALIGNANT NEOPLASM PROGRESSION [None]
  - PNEUMONIA [None]
